FAERS Safety Report 12507954 (Version 1)
Quarter: 2016Q2

REPORT INFORMATION
  Report Type: Spontaneous
  Country: US (occurrence: None)
  Receive Date: 20160628
  Receipt Date: 20160628
  Transmission Date: 20160815
  Serious: Yes (Disabling, Other)
  Sender: FDA-Public Use
  Company Number: None

PATIENT
  Age: 54 Year
  Sex: Female
  Weight: 29.94 kg

DRUGS (10)
  1. TRAMADOL HYDROCHLORIDE. [Suspect]
     Active Substance: TRAMADOL HYDROCHLORIDE
     Indication: PAIN IN EXTREMITY
     Route: 048
     Dates: start: 20130603, end: 20160627
  2. SYNTHROID [Concomitant]
     Active Substance: LEVOTHYROXINE SODIUM
  3. MAGNESIUM [Concomitant]
     Active Substance: MAGNESIUM
  4. PREDNISONE. [Concomitant]
     Active Substance: PREDNISONE
  5. CALCIUM WITH D [Concomitant]
     Active Substance: CALCIUM\VITAMIN D
  6. TRAMADOL. [Concomitant]
     Active Substance: TRAMADOL
  7. LIDODERM [Concomitant]
     Active Substance: LIDOCAINE
  8. TIZANDINE [Concomitant]
     Active Substance: TIZANIDINE
  9. VOLTAREN [Concomitant]
     Active Substance: DICLOFENAC SODIUM
  10. MULTIVITAMIN [Concomitant]
     Active Substance: VITAMINS

REACTIONS (11)
  - Aphasia [None]
  - Diarrhoea [None]
  - Apathy [None]
  - Depressed mood [None]
  - Affect lability [None]
  - Executive dysfunction [None]
  - Insomnia [None]
  - Visual impairment [None]
  - Memory impairment [None]
  - Activities of daily living impaired [None]
  - Decreased interest [None]

NARRATIVE: CASE EVENT DATE: 20160104
